FAERS Safety Report 4701598-6 (Version None)
Quarter: 2005Q2

REPORT INFORMATION
  Report Type: 
  Country: None (occurrence: None)
  Receive Date: 20050627
  Receipt Date: 20050615
  Transmission Date: 20051028
  Serious: Yes (Other)
  Sender: FDA-Public Use
  Company Number: 2005078394

PATIENT
  Age: 34 Year
  Sex: Female

DRUGS (3)
  1. XANAX [Suspect]
     Indication: PANIC DISORDER
     Dosage: 2 MG, 1 D, ORAL
     Route: 048
  2. AURORIX                  (MOCLOBEMIDE) [Concomitant]
  3. SEROQUEL [Concomitant]

REACTIONS (1)
  - CONVULSION [None]
